FAERS Safety Report 15623278 (Version 2)
Quarter: 2018Q4

REPORT INFORMATION
  Report Type: Spontaneous
  Country: US (occurrence: US)
  Receive Date: 20181115
  Receipt Date: 20181213
  Transmission Date: 20190205
  Serious: Yes (Hospitalization)
  Sender: FDA-Public Use
  Company Number: US-VERTEX PHARMACEUTICALS-2018-008238

PATIENT
  Age: 9 Year
  Sex: Female

DRUGS (18)
  1. FLOVENT HFA [Concomitant]
     Active Substance: FLUTICASONE PROPIONATE
     Dosage: INHALE TWO PUFF TWO TIMES A DAY.
     Route: 055
     Dates: start: 20180326
  2. ORKAMBI [Suspect]
     Active Substance: IVACAFTOR\LUMACAFTOR
     Indication: CYSTIC FIBROSIS
     Dosage: 200/250 MG, BID
     Route: 048
     Dates: start: 20170222
  3. IPRATROPIUM [Concomitant]
     Active Substance: IPRATROPIUM
     Dosage: USE 2 SPRAYS EACH NOSTRIL 3-4 TIMES, PRN
     Route: 045
  4. CREON [Concomitant]
     Active Substance: PANCRELIPASE AMYLASE\PANCRELIPASE LIPASE\PANCRELIPASE PROTEASE
     Dosage: TAKE 4-5 CAPSULES WITH MEALS AND 2-3 CAPSULES WITH SNACKS
     Route: 048
  5. VENTOLIN HFA [Concomitant]
     Active Substance: ALBUTEROL SULFATE
     Dosage: INHALE 2 PUFFS TWICE A DAY, MAY INCREASE TO 4 TIMES A DAY
     Route: 055
  6. SODIUM CHLORIDE. [Concomitant]
     Active Substance: SODIUM CHLORIDE
     Indication: COUGH
     Dosage: 4 ML BY INHALED ROUTE TWO TIMES DAILY. MAY INCREASE TO 4 TIMES PER DAY AS NEEDED.
     Route: 055
     Dates: start: 20171120
  7. DORNASE ALFA. [Concomitant]
     Active Substance: DORNASE ALFA
     Dosage: INHALE 2.5 ML (2.5 MG TOTAL) BY MOUTH ONCE A DAY.
     Route: 055
  8. CETRIZINE [Concomitant]
     Active Substance: CETIRIZINE HYDROCHLORIDE
     Dosage: TAKE ONE TABLET (10 MG TOTAL) BY MOUTH ONCE A DAY.
     Route: 048
     Dates: start: 20180530
  9. PEDIASURE                          /07459601/ [Concomitant]
     Dosage: UNK
     Dates: start: 20160407
  10. TOBRAMYCIN. [Concomitant]
     Active Substance: TOBRAMYCIN
     Dosage: INHALE CONTENTS OF 1 VIAL (300 MG) ORALLY VIA NEBULIZER, BID
     Route: 055
  11. INSULINE GLARGINE [Concomitant]
     Active Substance: INSULIN GLARGINE
     Dosage: INJECT 6 UNITS PER DAY
     Route: 058
  12. GLUCAGON. [Concomitant]
     Active Substance: GLUCAGON
     Indication: HYPOGLYCAEMIA
     Dosage: INJECT 1MG/ML INTO THIGH FOR HYPOGLYCEMIA. DISPENSE ONE FOR HOME AND ONE FOR SCHOOL.
  13. APIDRA [Concomitant]
     Active Substance: INSULIN GLULISINE
     Dosage: 70 UNITS PER DAY
  14. ADMELOG [Concomitant]
     Active Substance: INSULIN LISPRO
     Dosage: INJECT UP TO 70 UNITS PER DAY
     Route: 058
  15. AQUADEKS                           /07679501/ [Concomitant]
     Active Substance: MINERALS\VITAMINS
     Dosage: CHEW ONE TABLET EVERY DAY
     Route: 048
  16. FLUTICASONE. [Concomitant]
     Active Substance: FLUTICASONE
     Dosage: SPRAY ONCE IN BOTH NOSTRILS ONCE A DAY
     Route: 045
  17. ACETONE [Concomitant]
     Active Substance: ACETONE
     Dosage: TEST URINE FOR KETONES WHEN BLOOD SUGAR IS MORE THAN 240 MG/DL OR TWICE A DAY WHEN SICK.
     Dates: start: 20170810
  18. VITAMIN D3 [Concomitant]
     Active Substance: CHOLECALCIFEROL
     Dosage: 2000 UNITS QD

REACTIONS (1)
  - Infective pulmonary exacerbation of cystic fibrosis [Recovered/Resolved]

NARRATIVE: CASE EVENT DATE: 201809
